FAERS Safety Report 5263549-8 (Version None)
Quarter: 2007Q1

REPORT INFORMATION
  Report Type: 
  Country: None (occurrence: None)
  Receive Date: 20070313
  Receipt Date: 20070226
  Transmission Date: 20070707
  Serious: Yes (Hospitalization)
  Sender: FDA-Public Use
  Company Number: HQWYE222128FEB07

PATIENT
  Sex: Female

DRUGS (6)
  1. ENBREL [Suspect]
     Indication: RHEUMATOID ARTHRITIS
     Route: 058
     Dates: start: 20060927, end: 20070215
  2. PROSTAL [Concomitant]
     Route: 048
  3. ALFAROL [Concomitant]
     Route: 048
  4. CYANOCOBALAMIN [Concomitant]
     Route: 048
  5. PREDNISOLONE [Concomitant]
     Route: 048
  6. ACTONEL [Concomitant]
     Route: 048

REACTIONS (2)
  - PLEURISY [None]
  - TUBERCULOSIS [None]
